FAERS Safety Report 10613208 (Version 32)
Quarter: 2020Q1

REPORT INFORMATION
  Report Type: Report from Study
  Country: CA (occurrence: CA)
  Receive Date: 20141128
  Receipt Date: 20200225
  Transmission Date: 20200409
  Serious: Yes (Hospitalization, Other)
  Sender: FDA-Public Use
  Company Number: CA-ROCHE-1147324

PATIENT
  Age: 70 Year
  Sex: Female
  Weight: 66 kg

DRUGS (9)
  1. IBUPROFEN. [Concomitant]
     Active Substance: IBUPROFEN
  2. RITUXAN [Suspect]
     Active Substance: RITUXIMAB
     Indication: RHEUMATOID ARTHRITIS
     Route: 042
     Dates: start: 20110119, end: 20110430
  3. OMEGA 3 [DOCOSAHEXAENOIC ACID;EICOSAPENTAENOIC ACID] [Concomitant]
     Active Substance: DOCONEXENT\ICOSAPENT
  4. PREDNISONE. [Concomitant]
     Active Substance: PREDNISONE
  5. VITAMIN C [Concomitant]
     Active Substance: ASCORBIC ACID
  6. ACTEMRA [Suspect]
     Active Substance: TOCILIZUMAB
     Dosage: ON HOLD
     Route: 042
     Dates: start: 20130613
  7. ACTEMRA [Suspect]
     Active Substance: TOCILIZUMAB
     Indication: RHEUMATOID ARTHRITIS
     Route: 042
     Dates: start: 20120919
  8. HYDROMORPHONE [Concomitant]
     Active Substance: HYDROMORPHONE
  9. DILAUDID [Concomitant]
     Active Substance: HYDROMORPHONE HYDROCHLORIDE

REACTIONS (29)
  - Hypotension [Unknown]
  - Nasopharyngitis [Not Recovered/Not Resolved]
  - Blood pressure diastolic decreased [Unknown]
  - Musculoskeletal pain [Not Recovered/Not Resolved]
  - Blood pressure systolic increased [Unknown]
  - Weight increased [Unknown]
  - Cataract [Unknown]
  - Weight decreased [Recovering/Resolving]
  - Bronchitis [Recovered/Resolved]
  - Blood pressure diastolic decreased [Unknown]
  - Pulmonary mass [Unknown]
  - Pharyngitis streptococcal [Unknown]
  - Mass [Not Recovered/Not Resolved]
  - Nasopharyngitis [Recovering/Resolving]
  - Infected bite [Not Recovered/Not Resolved]
  - Rheumatoid arthritis [Not Recovered/Not Resolved]
  - Blood pressure increased [Unknown]
  - Lung neoplasm malignant [Unknown]
  - Tooth infection [Recovered/Resolved]
  - Joint range of motion decreased [Not Recovered/Not Resolved]
  - Pneumonia [Unknown]
  - Herpes zoster [Not Recovered/Not Resolved]
  - Oral herpes [Unknown]
  - Pruritus [Not Recovered/Not Resolved]
  - Infusion related reaction [Unknown]
  - Urticaria [Not Recovered/Not Resolved]
  - Blood pressure diastolic increased [Unknown]
  - Burning sensation [Not Recovered/Not Resolved]
  - Contusion [Not Recovered/Not Resolved]

NARRATIVE: CASE EVENT DATE: 2012
